FAERS Safety Report 13776371 (Version 2)
Quarter: 2017Q3

REPORT INFORMATION
  Report Type: Spontaneous
  Country: US (occurrence: US)
  Receive Date: 20170721
  Receipt Date: 20170913
  Transmission Date: 20171127
  Serious: No
  Sender: FDA-Public Use
  Company Number: US-JNJFOC-20170706557

PATIENT
  Sex: Female
  Weight: 97 kg

DRUGS (1)
  1. ULTRAM [Suspect]
     Active Substance: TRAMADOL HYDROCHLORIDE
     Indication: PAIN
     Dosage: AS NEEDED
     Route: 048
     Dates: start: 20150527, end: 20160211

REACTIONS (1)
  - Hallucination [Recovered/Resolved]
